FAERS Safety Report 4617208-2 (Version None)
Quarter: 2005Q1

REPORT INFORMATION
  Report Type: 
  Country: None (occurrence: None)
  Receive Date: 20050323
  Receipt Date: 20050322
  Transmission Date: 20050727
  Serious: Yes (Death)
  Sender: FDA-Public Use
  Company Number: PHRM2005FR01101

PATIENT
  Age: 51 Year
  Sex: Male

DRUGS (7)
  1. LEPTICUR [Suspect]
     Dosage: 30 MG/DAY
     Route: 048
  2. THERALENE [Suspect]
     Dosage: 40 DROPS/DAY
     Route: 048
  3. RIVOTRIL [Suspect]
     Dosage: 35 MG/DAY
     Route: 048
  4. TERCIAN [Suspect]
     Dosage: 150 MG, TID
     Route: 048
  5. DUPHALAC [Concomitant]
     Dosage: 2 DF, TID
     Route: 048
  6. TRANSIPEG [Concomitant]
     Route: 048
  7. LEPONEX [Suspect]
     Dosage: 600 MG/DAY
     Route: 048

REACTIONS (3)
  - ASPIRATION BRONCHIAL [None]
  - INFLAMMATION [None]
  - PULMONARY OEDEMA [None]
